FAERS Safety Report 24030597 (Version 1)
Quarter: 2024Q2

REPORT INFORMATION
  Report Type: Spontaneous
  Country: US (occurrence: None)
  Receive Date: 20240628
  Receipt Date: 20240628
  Transmission Date: 20240716
  Serious: Yes (unspecified)
  Sender: FDA-Public Use
  Company Number: None

PATIENT
  Age: 19 Year
  Sex: Female

DRUGS (1)
  1. FERRLECIT [Suspect]
     Active Substance: SODIUM FERRIC GLUCONATE COMPLEX
     Dates: start: 20240611, end: 20240626

REACTIONS (8)
  - Dizziness [None]
  - Headache [None]
  - Pallor [None]
  - Hyperhidrosis [None]
  - Eye movement disorder [None]
  - Malaise [None]
  - Blood pressure decreased [None]
  - Sinus bradycardia [None]

NARRATIVE: CASE EVENT DATE: 20240611
